FAERS Safety Report 5721246-6 (Version None)
Quarter: 2008Q2

REPORT INFORMATION
  Report Type: 
  Country: None (occurrence: None)
  Receive Date: 20080428
  Receipt Date: 20080428
  Transmission Date: 20081010
  Serious: Yes (Hospitalization)
  Sender: FDA-Public Use
  Company Number: None

PATIENT
  Age: 23 Year
  Sex: Male

DRUGS (2)
  1. TRAMADOL HCL [Suspect]
     Indication: PAIN
     Dosage: 50MG 1 TAB PO Q 6 HOURS PO
     Route: 048
     Dates: start: 20080415, end: 20080417
  2. GABAPENTIN [Suspect]
     Indication: PAIN
     Dosage: 300MG 1 TAB PO EVERY DAY PO
     Route: 048
     Dates: start: 20080415, end: 20080417

REACTIONS (6)
  - CONVULSION [None]
  - DYSARTHRIA [None]
  - FALL [None]
  - HEAD INJURY [None]
  - LACERATION [None]
  - SPEECH DISORDER [None]
